FAERS Safety Report 5281068-X (Version None)
Quarter: 2007Q1

REPORT INFORMATION
  Report Type: 
  Country: None (occurrence: None)
  Receive Date: 20061229
  Receipt Date: 20061005
  Transmission Date: 20070707
  Serious: Yes (Other)
  Sender: FDA-Public Use
  Company Number: 2006UW19415

PATIENT
  Age: 62 Year
  Sex: Female
  Weight: 127 kg

DRUGS (7)
  1. CRESTOR [Suspect]
     Indication: BLOOD CHOLESTEROL INCREASED
     Dosage: 5 MG QD PO
     Route: 048
     Dates: start: 20060820
  2. AVANDIA [Concomitant]
  3. BENICAR [Concomitant]
  4. GLUCOPHAGE [Concomitant]
  5. RELAFEN [Concomitant]
  6. ATENOLOL [Concomitant]
  7. SYNTHROID [Concomitant]

REACTIONS (3)
  - ASTHENIA [None]
  - FATIGUE [None]
  - PAIN [None]
